FAERS Safety Report 4888400-7 (Version None)
Quarter: 2005Q4

REPORT INFORMATION
  Report Type: 
  Country: None (occurrence: None)
  Receive Date: 20051221
  Receipt Date: 20051116
  Transmission Date: 20060501
  Serious: No
  Sender: FDA-Public Use
  Company Number: US-YAMANOUCHI-YPA20050596

PATIENT
  Age: 40 Year
  Sex: Female

DRUGS (5)
  1. VESICARE [Suspect]
     Dosage: 5  MG QD PO
     Route: 048
     Dates: start: 20051001, end: 20050101
  2. AVONEX [Concomitant]
  3. PREDNISONE [Concomitant]
  4. XANAX [Concomitant]
  5. IBUPROFEN [Concomitant]

REACTIONS (2)
  - HYPOTONIA [None]
  - VISION BLURRED [None]
